FAERS Safety Report 10573204 (Version 1)
Quarter: 2014Q4

REPORT INFORMATION
  Report Type: Spontaneous
  Country: CN (occurrence: None)
  Receive Date: 20141030
  Receipt Date: 20141030
  Transmission Date: 20150529
  Serious: Yes (Hospitalization, Other)
  Sender: FDA-Public Use
  Company Number: PHHY2013CN124842

PATIENT
  Age: 29 Year
  Sex: Male
  Weight: 55 kg

DRUGS (1)
  1. TELBIVUDINE [Suspect]
     Active Substance: TELBIVUDINE
     Indication: VIRAL INFECTION
     Route: 048
     Dates: start: 20110901, end: 20120618

REACTIONS (4)
  - Gait disturbance [None]
  - Pain in extremity [None]
  - Myopathy [None]
  - Blood creatine phosphokinase increased [None]

NARRATIVE: CASE EVENT DATE: 20120618
